FAERS Safety Report 8078671-0 (Version None)
Quarter: 2012Q1

REPORT INFORMATION
  Report Type: 
  Country: None (occurrence: None)
  Receive Date: 20120124
  Receipt Date: 20120116
  Transmission Date: 20120608
  Serious: Yes (Hospitalization)
  Sender: FDA-Public Use
  Company Number: AUR-APL-2012-00559

PATIENT
  Age: 77 Year
  Sex: Male

DRUGS (11)
  1. AMLODIPINE BESYLATE [Concomitant]
  2. ASPIRIN [Concomitant]
  3. SIMVASTATIN [Suspect]
     Indication: PRODUCT USED FOR UNKNOWN INDICATION
     Dosage: (20 MG,1 D), ORAL
     Route: 048
     Dates: start: 20081001, end: 20111001
  4. ISOSORBIDE MONONITRATE [Concomitant]
  5. VALSARTAN [Concomitant]
  6. SERETIDE DISKUS (SERETIDE) [Concomitant]
  7. OZIDIA (GLIPIZIDE) [Concomitant]
  8. CORDARONE [Suspect]
     Indication: PRODUCT USED FOR UNKNOWN INDICATION
     Dosage: (200 MG,FIVE DAYS A WEEK),ORAL
     Route: 048
     Dates: start: 20090301, end: 20110801
  9. DOMPERIDONE [Concomitant]
  10. TENORMIN [Concomitant]
  11. FUROSEMIDE [Concomitant]

REACTIONS (8)
  - INTERSTITIAL LUNG DISEASE [None]
  - ANTINEUTROPHIL CYTOPLASMIC ANTIBODY POSITIVE [None]
  - HYPOXIA [None]
  - HAEMOPTYSIS [None]
  - RHEUMATOID ARTHRITIS [None]
  - RHEUMATOID FACTOR POSITIVE [None]
  - ALVEOLITIS ALLERGIC [None]
  - ANTINUCLEAR ANTIBODY POSITIVE [None]
